FAERS Safety Report 5218522-2 (Version None)
Quarter: 2007Q1

REPORT INFORMATION
  Report Type: 
  Country: None (occurrence: None)
  Receive Date: 20061121
  Receipt Date: 20061006
  Transmission Date: 20070707
  Serious: No
  Sender: FDA-Public Use
  Company Number: TPA2006A01749

PATIENT
  Age: 86 Year
  Sex: Female
  Weight: 45.3597 kg

DRUGS (4)
  1. ROZEREM [Suspect]
     Indication: INSOMNIA
     Dosage: 8 MGS, QHS, PER ORAL
     Route: 048
     Dates: start: 20061005
  2. CENTRUM (VITAMINS NOS, MINERALS NOS) [Concomitant]
  3. CALCIUM PLUS D (ERGOCALCIFEROL, CALCIUM PHOSPHATE, CALCIUM SODIUM LACT [Concomitant]
  4. GLUCOSAMINE (GLUCOSAMINE) [Concomitant]

REACTIONS (5)
  - ASTHENIA [None]
  - DIZZINESS [None]
  - FEELING ABNORMAL [None]
  - INITIAL INSOMNIA [None]
  - SOMNOLENCE [None]
